FAERS Safety Report 7235513-0 (Version None)
Quarter: 2011Q1

REPORT INFORMATION
  Report Type: 
  Country: None (occurrence: None)
  Receive Date: 20110120
  Receipt Date: 20110107
  Transmission Date: 20110831
  Serious: Yes (Death, Hospitalization)
  Sender: FDA-Public Use
  Company Number: JP-ELI_LILLY_AND_COMPANY-JP201101002263

PATIENT
  Age: 63 Year
  Sex: Male

DRUGS (3)
  1. PARAPLATIN [Concomitant]
     Indication: NON-SMALL CELL LUNG CANCER
     Dosage: 690 MG, UNK
     Route: 042
     Dates: start: 20101214
  2. ZOMETA [Concomitant]
     Indication: METASTASES TO BONE
     Dosage: 4 MG, UNK
     Route: 042
     Dates: start: 20101221
  3. ALIMTA [Suspect]
     Indication: NON-SMALL CELL LUNG CANCER
     Dosage: 880 MG, UNK
     Route: 042
     Dates: start: 20101214

REACTIONS (1)
  - HEPATIC FAILURE [None]
